FAERS Safety Report 23732796 (Version 1)
Quarter: 2024Q2

REPORT INFORMATION
  Report Type: Report from Study
  Country: CR (occurrence: None)
  Receive Date: 20240411
  Receipt Date: 20240411
  Transmission Date: 20240716
  Serious: Yes (Death, Hospitalization, Other)
  Sender: FDA-Public Use
  Company Number: 2019SF68865

PATIENT
  Sex: Male

DRUGS (1)
  1. SYMBICORT [Suspect]
     Active Substance: BUDESONIDE\FORMOTEROL FUMARATE DIHYDRATE
     Dosage: 320 MCG/9 ONE DOSE IN THE MORNING AND OTHER DOSE IN THE AFTERNOON
     Route: 055

REACTIONS (2)
  - Aortic rupture [Fatal]
  - Pain [Unknown]
